FAERS Safety Report 12098853 (Version 1)
Quarter: 2016Q1

REPORT INFORMATION
  Report Type: Spontaneous
  Country: US (occurrence: US)
  Receive Date: 20160222
  Receipt Date: 20160222
  Transmission Date: 20160526
  Serious: No
  Sender: FDA-Public Use
  Company Number: US-BAYER-2016-033967

PATIENT
  Age: 81 Year
  Sex: Male
  Weight: 106.58 kg

DRUGS (8)
  1. COLACE [Concomitant]
     Active Substance: DOCUSATE SODIUM
  2. IRBESARTAN. [Concomitant]
     Active Substance: IRBESARTAN
  3. TAMSULOSIN [Concomitant]
     Active Substance: TAMSULOSIN
  4. ATORVASTATIN [Concomitant]
     Active Substance: ATORVASTATIN
  5. MIRALAX [Suspect]
     Active Substance: POLYETHYLENE GLYCOL 3350
     Indication: CONSTIPATION
     Dosage: 1 DF, QD
     Route: 048
     Dates: start: 201601
  6. FISH OIL [Concomitant]
     Active Substance: FISH OIL
  7. THYROXINE [Concomitant]
     Active Substance: LEVOTHYROXINE
  8. FLOMAX [Concomitant]
     Active Substance: TAMSULOSIN HYDROCHLORIDE

REACTIONS (1)
  - Product use issue [None]

NARRATIVE: CASE EVENT DATE: 201601
